FAERS Safety Report 16139482 (Version 2)
Quarter: 2019Q2

REPORT INFORMATION
  Report Type: Spontaneous
  Country: HR (occurrence: HR)
  Receive Date: 20190330
  Receipt Date: 20190405
  Transmission Date: 20190711
  Serious: Yes (Hospitalization, Other)
  Sender: FDA-Public Use
  Company Number: HR-ABBVIE-19K-216-2726589-00

PATIENT
  Age: 64 Year
  Sex: Male

DRUGS (2)
  1. VENETOCLAX. [Suspect]
     Active Substance: VENETOCLAX
     Indication: CHRONIC LYMPHOCYTIC LEUKAEMIA
     Dosage: INCREASE OF THE DOSE IN ACCORDANCE WITH APPROVED SMPC.
     Route: 048
     Dates: start: 20180917
  2. VENETOCLAX. [Suspect]
     Active Substance: VENETOCLAX
     Route: 048
     Dates: start: 20181016, end: 20190212

REACTIONS (6)
  - Dyspnoea [Unknown]
  - Chronic lymphocytic leukaemia [Recovered/Resolved]
  - Lymphadenopathy [Unknown]
  - Pneumonia [Unknown]
  - Richter^s syndrome [Recovered/Resolved]
  - Pleural effusion [Unknown]

NARRATIVE: CASE EVENT DATE: 201901
